FAERS Safety Report 7230624-8 (Version None)
Quarter: 2011Q1

REPORT INFORMATION
  Report Type: 
  Country: None (occurrence: None)
  Receive Date: 20110117
  Receipt Date: 20110105
  Transmission Date: 20110831
  Serious: Yes (Other)
  Sender: FDA-Public Use
  Company Number: US-ELI_LILLY_AND_COMPANY-US201101001792

PATIENT
  Age: 75 Year
  Sex: Male

DRUGS (2)
  1. FORTEO [Suspect]
     Indication: OSTEOPOROSIS
     Dosage: 20 UG, DAILY (1/D)
     Route: 065
  2. ANTIHYPERTENSIVES [Concomitant]
     Dosage: UNK, UNKNOWN
     Route: 065

REACTIONS (8)
  - DYSPNOEA EXERTIONAL [None]
  - INJURY [None]
  - LETHARGY [None]
  - HEART VALVE INCOMPETENCE [None]
  - DYSPNOEA [None]
  - ACCIDENT AT HOME [None]
  - FALL [None]
  - CARDIAC MURMUR [None]
